FAERS Safety Report 24169713 (Version 5)
Quarter: 2024Q4

REPORT INFORMATION
  Report Type: Report from Study
  Country: US (occurrence: US)
  Receive Date: 20240803
  Receipt Date: 20241009
  Transmission Date: 20250115
  Serious: No
  Sender: GLAXOSMITHKLINE
  Company Number: US-GSKCCFUS-Case-02064254_AE-114214

PATIENT
  Age: 68 Year
  Sex: Female

DRUGS (2)
  1. BELIMUMAB [Suspect]
     Active Substance: BELIMUMAB
     Indication: Systemic lupus erythematosus
     Dosage: 200 MG, WE
     Dates: start: 20240718
  2. BELIMUMAB [Suspect]
     Active Substance: BELIMUMAB
     Indication: Systemic lupus erythematosus
     Dosage: UNK, WE

REACTIONS (16)
  - Injection site pain [Unknown]
  - Injection site haemorrhage [Unknown]
  - Ill-defined disorder [Unknown]
  - Initial insomnia [Unknown]
  - Malaise [Unknown]
  - Abdominal pain upper [Unknown]
  - Diarrhoea [Unknown]
  - Gastrointestinal disorder [Unknown]
  - Exposure via skin contact [Unknown]
  - Bedridden [Unknown]
  - Back disorder [Unknown]
  - Product administered at inappropriate site [Unknown]
  - Product dose omission issue [Unknown]
  - Product storage error [Unknown]
  - Accidental exposure to product [Unknown]
  - Wrong technique in device usage process [Unknown]

NARRATIVE: CASE EVENT DATE: 20240917
